FAERS Safety Report 12840934 (Version 1)
Quarter: 2016Q4

REPORT INFORMATION
  Report Type: Spontaneous
  Country: US (occurrence: US)
  Receive Date: 20161012
  Receipt Date: 20161012
  Transmission Date: 20170207
  Serious: No
  Sender: FDA-Public Use
  Company Number: US-NOVOPROD-507041

PATIENT
  Age: 61 Year
  Sex: Female

DRUGS (2)
  1. AMLODIPINE [Concomitant]
     Active Substance: AMLODIPINE BESYLATE
     Indication: BLOOD PRESSURE MEASUREMENT
     Dosage: 10-20MG
  2. SAXENDA [Suspect]
     Active Substance: LIRAGLUTIDE
     Indication: WEIGHT CONTROL
     Dosage: 3 MG, QD
     Route: 058
     Dates: start: 2016

REACTIONS (1)
  - Headache [Not Recovered/Not Resolved]

NARRATIVE: CASE EVENT DATE: 201608
